FAERS Safety Report 23588666 (Version 1)
Quarter: 2024Q1

REPORT INFORMATION
  Report Type: Spontaneous
  Country: BR (occurrence: BR)
  Receive Date: 20240302
  Receipt Date: 20240302
  Transmission Date: 20240410
  Serious: Yes (Hospitalization)
  Sender: FDA-Public Use
  Company Number: BR-NOVITIUMPHARMA-2024BRNVP00181

PATIENT
  Age: 32 Year
  Sex: Female

DRUGS (4)
  1. POTASSIUM CHLORIDE [Suspect]
     Active Substance: POTASSIUM CHLORIDE
     Indication: Electrolyte depletion
  2. AMIODARONE [Concomitant]
     Active Substance: AMIODARONE
     Indication: Electrolyte depletion
  3. CALCIUM [Concomitant]
     Active Substance: CALCIUM
     Indication: Electrolyte depletion
  4. MAGNESIUM [Concomitant]
     Active Substance: MAGNESIUM
     Indication: Electrolyte depletion

REACTIONS (1)
  - Drug ineffective [Unknown]
